FAERS Safety Report 18581633 (Version 1)
Quarter: 2020Q4

REPORT INFORMATION
  Report Type: Spontaneous
  Country: NL (occurrence: NL)
  Receive Date: 20201204
  Receipt Date: 20201204
  Transmission Date: 20210114
  Serious: Yes (Death)
  Sender: FDA-Public Use
  Company Number: NVSC2020NL323560

PATIENT
  Sex: Male
  Weight: 80 kg

DRUGS (2)
  1. MORFINESULFAAT SANDOZ [Suspect]
     Active Substance: MORPHINE SULFATE
     Indication: RENAL COLIC
     Dosage: 10 MG (EENMALIG 10 MG S.C,)
     Route: 058
     Dates: start: 20200901
  2. DICLOFENACNATRIUM [Suspect]
     Active Substance: DICLOFENAC SODIUM
     Indication: PRODUCT USED FOR UNKNOWN INDICATION
     Dosage: UNK (INJECTIEVLOEISTOF, 25 MG/ML)
     Route: 065
     Dates: start: 20200901

REACTIONS (2)
  - Pruritus allergic [Not Recovered/Not Resolved]
  - Shock [Fatal]
